FAERS Safety Report 22035474 (Version 1)
Quarter: 2023Q1

REPORT INFORMATION
  Report Type: Spontaneous
  Country: US (occurrence: None)
  Receive Date: 20230223
  Receipt Date: 20230223
  Transmission Date: 20230417
  Serious: Yes (Hospitalization, Other)
  Sender: FDA-Public Use
  Company Number: None

PATIENT
  Age: 80 Year
  Sex: Female
  Weight: 60.5 kg

DRUGS (1)
  1. DOCETAXEL [Suspect]
     Active Substance: DOCETAXEL
     Indication: Breast cancer
     Dosage: OTHER FREQUENCY : WEEKLY;?
     Route: 041
     Dates: start: 20230217

REACTIONS (6)
  - Infusion related reaction [None]
  - Unresponsive to stimuli [None]
  - Gaze palsy [None]
  - Therapy cessation [None]
  - Pulse absent [None]
  - Respiratory arrest [None]

NARRATIVE: CASE EVENT DATE: 20230217
